FAERS Safety Report 16396080 (Version 1)
Quarter: 2019Q2

REPORT INFORMATION
  Report Type: Spontaneous
  Country: None (occurrence: US)
  Receive Date: 20190605
  Receipt Date: 20190605
  Transmission Date: 20190711
  Serious: No
  Sender: FDA-Public Use
  Company Number: US-ARMSTRONG PHARMACEUTICALS, INC.-2067836

PATIENT
  Sex: Male

DRUGS (1)
  1. PRIMATENE MIST [Suspect]
     Active Substance: EPINEPHRINE
     Route: 055

REACTIONS (1)
  - Drug ineffective [Unknown]
